FAERS Safety Report 7769809-0 (Version None)
Quarter: 2011Q3

REPORT INFORMATION
  Report Type: 
  Country: None (occurrence: None)
  Receive Date: 20110922
  Receipt Date: 20100811
  Transmission Date: 20111222
  Serious: No
  Sender: FDA-Public Use
  Company Number: US-ASTRAZENECA-2010SE37611

PATIENT
  Age: 47 Year
  Sex: Female
  Weight: 49.9 kg

DRUGS (5)
  1. RITALIN [Concomitant]
  2. SEROQUEL XR [Suspect]
     Route: 048
     Dates: start: 20100801
  3. SEROQUEL XR [Suspect]
     Route: 048
     Dates: start: 20100801
  4. SEROQUEL XR [Suspect]
     Indication: BIPOLAR DISORDER
     Route: 048
  5. SEROQUEL XR [Suspect]
     Indication: MANIA
     Route: 048

REACTIONS (2)
  - DRUG INEFFECTIVE [None]
  - MANIA [None]
